FAERS Safety Report 5729396-5 (Version None)
Quarter: 2008Q2

REPORT INFORMATION
  Report Type: 
  Country: None (occurrence: None)
  Receive Date: 20080506
  Receipt Date: 20080428
  Transmission Date: 20081010
  Serious: Yes (Other)
  Sender: FDA-Public Use
  Company Number: PHHY2008ES06886

PATIENT
  Age: 84 Year
  Sex: Female

DRUGS (1)
  1. FAMVIR [Suspect]
     Indication: HERPES ZOSTER
     Dosage: 750 MG, DAILY
     Route: 048
     Dates: start: 20070328, end: 20070329

REACTIONS (4)
  - DISORIENTATION [None]
  - DYSARTHRIA [None]
  - DYSPHAGIA [None]
  - MALAISE [None]
